FAERS Safety Report 25959191 (Version 1)
Quarter: 2025Q4

REPORT INFORMATION
  Report Type: Other
  Country: IN (occurrence: IN)
  Receive Date: 20251025
  Receipt Date: 20251025
  Transmission Date: 20260118
  Serious: Yes (Death)
  Sender: ANI
  Company Number: IN-ANIPHARMA-030962

PATIENT
  Age: 33 Year
  Sex: Female

DRUGS (4)
  1. LEUCOVORIN [Suspect]
     Active Substance: LEUCOVORIN\LEUCOVORIN CALCIUM
     Indication: Pancreatic carcinoma
     Dosage: MODIFIED FOLFIRINOX (FOUR CYCLES)
  2. FLUOROURACIL [Concomitant]
     Active Substance: FLUOROURACIL
     Indication: Pancreatic carcinoma
     Dosage: MODIFIED FOLFIRINOX (FOUR CYCLES)
  3. IRINOTECAN [Concomitant]
     Active Substance: IRINOTECAN
     Indication: Pancreatic carcinoma
     Dosage: MODIFIED FOLFIRINOX (FOUR CYCLES)
  4. OXALIPLATIN [Concomitant]
     Active Substance: OXALIPLATIN
     Indication: Pancreatic carcinoma
     Dosage: MODIFIED FOLFIRINOX (FOUR CYCLES)

REACTIONS (2)
  - Hepatic lesion [Fatal]
  - General physical health deterioration [Fatal]
